FAERS Safety Report 7193440-1 (Version None)
Quarter: 2010Q4

REPORT INFORMATION
  Report Type: 
  Country: None (occurrence: None)
  Receive Date: 20101124
  Receipt Date: 20100908
  Transmission Date: 20110411
  Serious: No
  Sender: FDA-Public Use
  Company Number: 018489

PATIENT

DRUGS (1)
  1. LACOSAMIDE [Suspect]
     Dosage: (50 MG BID) ; (DOSE INCREASED) ; (50 MG BID) ; (DOSE INCREASED)

REACTIONS (1)
  - ABNORMAL BEHAVIOUR [None]
